FAERS Safety Report 5152261-1 (Version None)
Quarter: 2006Q4

REPORT INFORMATION
  Report Type: 
  Country: None (occurrence: None)
  Receive Date: 20061113
  Receipt Date: 20061113
  Transmission Date: 20070319
  Serious: Yes (Disabling)
  Sender: FDA-Public Use
  Company Number: None

PATIENT
  Age: 34 Year
  Sex: Female

DRUGS (1)
  1. MINOCIN [Suspect]
     Indication: ACNE
     Dosage: 100MG BID PO
     Route: 048

REACTIONS (4)
  - CONTUSION [None]
  - GINGIVAL DISCOLOURATION [None]
  - ROSACEA [None]
  - SKIN DISCOLOURATION [None]
